FAERS Safety Report 10347297 (Version 3)
Quarter: 2014Q3

REPORT INFORMATION
  Report Type: Spontaneous
  Country: US (occurrence: US)
  Receive Date: 20140729
  Receipt Date: 20140912
  Transmission Date: 20150326
  Serious: Yes (Other)
  Sender: FDA-Public Use
  Company Number: US-PFIZER INC-2014206611

PATIENT
  Age: 60 Year
  Sex: Female
  Weight: 65 kg

DRUGS (13)
  1. SIMVASTATIN. [Concomitant]
     Active Substance: SIMVASTATIN
     Dosage: 10 MG, QHS
     Route: 048
     Dates: start: 20130326
  2. SINGULAIR [Concomitant]
     Active Substance: MONTELUKAST SODIUM
     Indication: PRODUCTIVE COUGH
  3. SYNTHROID [Suspect]
     Active Substance: LEVOTHYROXINE SODIUM
     Indication: THYROID DISORDER
     Dosage: 125 UG, EVERY DAY
     Route: 048
     Dates: start: 20131107
  4. AZITHROMYCIN [Concomitant]
     Active Substance: AZITHROMYCIN ANHYDROUS
     Dosage: 250 MG, (2 TABLETS ON DAY ONE, THEN 1 TABLET ON DAYS 2-5)
     Route: 048
     Dates: start: 20120713
  5. TESSALON [Concomitant]
     Active Substance: BENZONATATE
     Indication: COUGH
     Dosage: 100 MG, (EVERY 8 HRS, PRN)
     Route: 048
     Dates: start: 20120724
  6. ATORVASTATIN CALCIUM. [Concomitant]
     Active Substance: ATORVASTATIN CALCIUM
     Indication: HYPERCHOLESTEROLAEMIA
     Dosage: 20 MG, 1 AT BEDTIME
     Dates: start: 20120920
  7. LOVAZA [Concomitant]
     Active Substance: OMEGA-3-ACID ETHYL ESTERS
     Dosage: 2G, 2 CAPSULE ORAL EVERY 12 HOURS
     Route: 048
     Dates: start: 20120920
  8. PREMPRO [Suspect]
     Active Substance: ESTROGENS, CONJUGATED\MEDROXYPROGESTERONE ACETATE
     Indication: MENOPAUSAL SYMPTOMS
     Dosage: 1 DF, 1X/DAY
     Route: 048
     Dates: start: 20131101
  9. CRESTOR [Concomitant]
     Active Substance: ROSUVASTATIN CALCIUM
     Dosage: 10 MG, EVERY DAY
     Route: 048
     Dates: start: 20120724
  10. FLEXERIL [Concomitant]
     Active Substance: CYCLOBENZAPRINE HYDROCHLORIDE
     Dosage: 10 MG, 1 AT BEDTIME
     Route: 048
     Dates: start: 20120713
  11. PREMPRO [Suspect]
     Active Substance: ESTROGENS, CONJUGATED\MEDROXYPROGESTERONE ACETATE
     Indication: PREMATURE MENOPAUSE
  12. SINGULAIR [Concomitant]
     Active Substance: MONTELUKAST SODIUM
     Indication: HYPERSENSITIVITY
     Dosage: 10 MG, ONE TABLET AT BEDTIME
     Route: 048
     Dates: start: 20120713
  13. DICLOFENAC SODIUM. [Concomitant]
     Active Substance: DICLOFENAC SODIUM
     Indication: PAIN
     Dosage: 50 MG, (EVERY 8 HOURS, PRN)
     Route: 048
     Dates: start: 20120920

REACTIONS (18)
  - Cardiac disorder [Unknown]
  - Skin disorder [Unknown]
  - Alopecia [Unknown]
  - Dry skin [Unknown]
  - Malaise [Unknown]
  - Hypoaesthesia [Unknown]
  - Discomfort [Unknown]
  - Insomnia [Unknown]
  - Arthralgia [Unknown]
  - Back pain [Unknown]
  - Headache [Unknown]
  - Pain [Unknown]
  - Asthenia [Unknown]
  - Arthritis [Unknown]
  - Onychoclasis [Unknown]
  - Pain in extremity [Unknown]
  - Musculoskeletal disorder [Unknown]
  - Nail disorder [Unknown]
